FAERS Safety Report 7564208-9 (Version None)
Quarter: 2011Q2

REPORT INFORMATION
  Report Type: 
  Country: None (occurrence: None)
  Receive Date: 20110622
  Receipt Date: 20110608
  Transmission Date: 20111010
  Serious: Yes (Other)
  Sender: FDA-Public Use
  Company Number: PHHY2011AU43268

PATIENT
  Age: 19 Year
  Sex: Male

DRUGS (2)
  1. TEGRETOL-XR [Suspect]
     Dosage: UNK UKN, UNK
     Route: 048
     Dates: start: 20110603
  2. TEGRETOL-XR [Suspect]
     Indication: EPILEPSY
     Dosage: 400 MG, BID
     Route: 048
     Dates: start: 20110407

REACTIONS (2)
  - DYSGEUSIA [None]
  - DECREASED APPETITE [None]
